FAERS Safety Report 6763069-5 (Version None)
Quarter: 2010Q2

REPORT INFORMATION
  Report Type: 
  Country: None (occurrence: None)
  Receive Date: 20100609
  Receipt Date: 20100527
  Transmission Date: 20101027
  Serious: Yes (Other)
  Sender: FDA-Public Use
  Company Number: PHHY2010US35080

PATIENT
  Sex: Female

DRUGS (1)
  1. RECLAST [Suspect]
     Dosage: 5 MG
     Route: 042

REACTIONS (3)
  - ARTHRALGIA [None]
  - INFUSION RELATED REACTION [None]
  - SYSTEMIC LUPUS ERYTHEMATOSUS [None]
